FAERS Safety Report 15693054 (Version 1)
Quarter: 2018Q4

REPORT INFORMATION
  Report Type: Report from Study
  Country: None (occurrence: GB)
  Receive Date: 20181206
  Receipt Date: 20181206
  Transmission Date: 20190205
  Serious: Yes (Hospitalization)
  Sender: FDA-Public Use
  Company Number: GB-ABBVIE-18K-167-2575143-00

PATIENT
  Age: 67 Year
  Sex: Female
  Weight: 136 kg

DRUGS (1)
  1. HUMIRA [Suspect]
     Active Substance: ADALIMUMAB
     Indication: RHEUMATOID ARTHRITIS
     Route: 058
     Dates: start: 20110515, end: 20120724

REACTIONS (3)
  - Lower respiratory tract infection [Unknown]
  - Ovarian cyst [Unknown]
  - Constipation [Unknown]

NARRATIVE: CASE EVENT DATE: 20120919
